FAERS Safety Report 5739863-6 (Version None)
Quarter: 2008Q2

REPORT INFORMATION
  Report Type: 
  Country: None (occurrence: None)
  Receive Date: 20080513
  Receipt Date: 20080513
  Transmission Date: 20081010
  Serious: Yes (Life-Threatening)
  Sender: FDA-Public Use
  Company Number: None

PATIENT
  Age: 66 Year
  Sex: Female
  Weight: 77.1115 kg

DRUGS (2)
  1. CELEBREX [Suspect]
     Indication: PROCEDURAL PAIN
     Dosage: 200 MG ONCE PO
     Route: 048
  2. CELEBREX [Suspect]
     Indication: SKIN PAPILLOMA
     Dosage: 200 MG ONCE PO
     Route: 048

REACTIONS (1)
  - DRUG HYPERSENSITIVITY [None]
